FAERS Safety Report 7047653-X (Version None)
Quarter: 2010Q4

REPORT INFORMATION
  Report Type: 
  Country: None (occurrence: None)
  Receive Date: 20101014
  Receipt Date: 20101014
  Transmission Date: 20110411
  Serious: Yes (Hospitalization)
  Sender: FDA-Public Use
  Company Number: None

PATIENT
  Sex: Female
  Weight: 106.2 kg

DRUGS (3)
  1. DAPTOMYCIN [Suspect]
     Indication: DEVICE RELATED INFECTION
     Dosage: 600 MG Q24H IV
     Route: 042
     Dates: start: 20101005, end: 20101012
  2. DAPTOMYCIN [Suspect]
     Indication: ENTEROCOCCAL BACTERAEMIA
     Dosage: 600 MG Q24H IV
     Route: 042
     Dates: start: 20101005, end: 20101012
  3. DAPTOMYCIN [Suspect]
     Indication: STAPHYLOCOCCAL BACTERAEMIA
     Dosage: 600 MG Q24H IV
     Route: 042
     Dates: start: 20101005, end: 20101012

REACTIONS (4)
  - BLOOD CREATINE PHOSPHOKINASE INCREASED [None]
  - BLOOD POTASSIUM INCREASED [None]
  - MUSCLE SPASMS [None]
  - RHABDOMYOLYSIS [None]
